FAERS Safety Report 8370033-1 (Version None)
Quarter: 2012Q2

REPORT INFORMATION
  Report Type: 
  Country: None (occurrence: None)
  Receive Date: 20120518
  Receipt Date: 20120511
  Transmission Date: 20120825
  Serious: Yes (Hospitalization, Disabling)
  Sender: FDA-Public Use
  Company Number: PHHY2012DE033695

PATIENT
  Sex: Male
  Weight: 80 kg

DRUGS (5)
  1. AFINITOR [Suspect]
     Dosage: 5 MG, DAILY
     Route: 048
  2. TEMSIROLIMUS [Suspect]
     Indication: METASTATIC RENAL CELL CARCINOMA
     Dates: start: 20110629, end: 20110701
  3. AFINITOR [Suspect]
     Indication: METASTATIC RENAL CELL CARCINOMA
     Dosage: 10 MG, QD
     Route: 048
     Dates: start: 20110512, end: 20110615
  4. PREDNISOLONE [Concomitant]
     Dosage: 50 MG, DAILY
     Dates: start: 20120301, end: 20120401
  5. AFINITOR [Suspect]
     Dosage: 10 MG, QD
     Route: 048
     Dates: start: 20110922, end: 20120220

REACTIONS (5)
  - HERPES ZOSTER [None]
  - DEEP VEIN THROMBOSIS [None]
  - PNEUMOTHORAX [None]
  - PNEUMONIA PRIMARY ATYPICAL [None]
  - PULMONARY EMBOLISM [None]
